FAERS Safety Report 22078161 (Version 1)
Quarter: 2023Q1

REPORT INFORMATION
  Report Type: Spontaneous
  Country: US (occurrence: None)
  Receive Date: 20230308
  Receipt Date: 20230308
  Transmission Date: 20230417
  Serious: Yes (Congenital Anomaly)
  Sender: FDA-Public Use
  Company Number: None

PATIENT
  Age: 24 Year
  Sex: Female
  Weight: 54 kg

DRUGS (5)
  1. CELLCEPT [Suspect]
     Active Substance: MYCOPHENOLATE MOFETIL
     Indication: Renal transplant
     Dates: start: 20120812, end: 20200120
  2. TACROLIMUS [Concomitant]
     Active Substance: TACROLIMUS
  3. AZATHIOPRINE [Concomitant]
     Active Substance: AZATHIOPRINE
  4. ENALAPRIL [Concomitant]
     Active Substance: ENALAPRIL
  5. PREDNISONE [Concomitant]
     Active Substance: PREDNISONE

REACTIONS (8)
  - Renal transplant [None]
  - Microtia [None]
  - Cleft palate [None]
  - Premature baby [None]
  - Micrognathia [None]
  - Congenital anomaly [None]
  - Foetal exposure timing unspecified [None]
  - Foetal exposure timing unspecified [None]

NARRATIVE: CASE EVENT DATE: 20200826
